FAERS Safety Report 19801407 (Version 12)
Quarter: 2023Q4

REPORT INFORMATION
  Report Type: Report from Study
  Country: CO (occurrence: CO)
  Receive Date: 20210907
  Receipt Date: 20231006
  Transmission Date: 20240110
  Serious: Yes (Hospitalization)
  Sender: FDA-Public Use
  Company Number: NVSC2021CO199210

PATIENT
  Sex: Male

DRUGS (1)
  1. COSENTYX [Suspect]
     Active Substance: SECUKINUMAB
     Indication: Ankylosing spondylitis
     Dosage: 150 MG, QMO
     Route: 058

REACTIONS (16)
  - COVID-19 [Recovered/Resolved with Sequelae]
  - Chest discomfort [Unknown]
  - Respiratory disorder [Unknown]
  - Asthenia [Unknown]
  - Dyspnoea [Unknown]
  - Fatigue [Unknown]
  - Oxygen saturation decreased [Unknown]
  - Illness [Unknown]
  - Fear [Unknown]
  - Anxiety [Unknown]
  - Infarction [Unknown]
  - Influenza [Unknown]
  - Muscle disorder [Unknown]
  - Myalgia [Unknown]
  - General physical health deterioration [Unknown]
  - Inappropriate schedule of product administration [Unknown]
